FAERS Safety Report 7006945-0 (Version None)
Quarter: 2010Q3

REPORT INFORMATION
  Report Type: 
  Country: None (occurrence: None)
  Receive Date: 20100922
  Receipt Date: 20100914
  Transmission Date: 20110219
  Serious: Yes (Other)
  Sender: FDA-Public Use
  Company Number: US-JNJFOC-20100407653

PATIENT
  Sex: Female
  Weight: 63.96 kg

DRUGS (10)
  1. LEVAQUIN [Suspect]
     Indication: URINARY TRACT INFECTION
     Route: 048
  2. PROCRIT [Concomitant]
     Indication: ANAEMIA
     Route: 050
  3. TRAMADOL [Concomitant]
     Indication: PAIN
     Dosage: 2 TABS 3 TIMES A DAY AS NEEDED FOR PAIN
     Route: 048
  4. THYROID THERAPY [Concomitant]
     Indication: HYPOTHYROIDISM
     Route: 048
  5. IRON [Concomitant]
     Indication: ANAEMIA
     Route: 048
  6. ZOLOFT [Concomitant]
     Indication: DEPRESSION
     Route: 048
  7. XANAX [Concomitant]
     Indication: ANXIETY
     Route: 048
  8. MIRTAZAPINE [Concomitant]
     Indication: SLEEP DISORDER
     Route: 065
  9. SOMA [Concomitant]
     Indication: MUSCLE RELAXANT THERAPY
     Route: 048
  10. FOLIC ACID [Concomitant]
     Indication: ANAEMIA
     Route: 048

REACTIONS (6)
  - ABASIA [None]
  - ARTHRALGIA [None]
  - FALL [None]
  - PATELLA FRACTURE [None]
  - PRODUCT LABEL ISSUE [None]
  - TENDON INJURY [None]
